FAERS Safety Report 23722039 (Version 3)
Quarter: 2024Q2

REPORT INFORMATION
  Report Type: Spontaneous
  Country: US (occurrence: US)
  Receive Date: 20240409
  Receipt Date: 20240529
  Transmission Date: 20240716
  Serious: Yes (Life-Threatening, Hospitalization)
  Sender: FDA-Public Use
  Company Number: US-Vifor (International) Inc.-VIT-2024-03003

PATIENT
  Age: 54 Year
  Sex: Male
  Weight: 86.5 kg

DRUGS (2)
  1. MIRCERA [Suspect]
     Active Substance: METHOXY POLYETHYLENE GLYCOL-EPOETIN BETA
     Indication: Nephrogenic anaemia
     Route: 010
     Dates: start: 20240209, end: 20240325
  2. VENOFER [Suspect]
     Active Substance: IRON SUCROSE
     Indication: Nephrogenic anaemia
     Dosage: SUBSEQUENTLY ADMINISTERED ON 18-MAR-2024, 25-MAR-2024, LATER EXPOSURE WITH THE SAME IRON MEDICATION
     Route: 042
     Dates: start: 20240315

REACTIONS (4)
  - Drug hypersensitivity [Recovered/Resolved]
  - Cardio-respiratory arrest [Recovered/Resolved]
  - Anaphylactic reaction [Recovered/Resolved]
  - Pruritus [Recovered/Resolved]

NARRATIVE: CASE EVENT DATE: 20240325
